FAERS Safety Report 5513699-3 (Version None)
Quarter: 2007Q4

REPORT INFORMATION
  Report Type: 
  Country: None (occurrence: None)
  Receive Date: 20071113
  Receipt Date: 20071101
  Transmission Date: 20080405
  Serious: Yes (Hospitalization)
  Sender: FDA-Public Use
  Company Number: JP-NOVOPROD-268806

PATIENT
  Age: 74 Year
  Sex: Male

DRUGS (3)
  1. NOVORAPID CHU [Suspect]
     Indication: DIABETES MELLITUS
     Route: 058
  2. PENFILL 30R CHU [Suspect]
     Indication: DIABETES MELLITUS
     Route: 058
  3. NATEGLINIDE [Concomitant]

REACTIONS (3)
  - ANTI-INSULIN ANTIBODY POSITIVE [None]
  - DIABETES MELLITUS INADEQUATE CONTROL [None]
  - GASTRIC CANCER [None]
